FAERS Safety Report 6749814-3 (Version None)
Quarter: 2010Q2

REPORT INFORMATION
  Report Type: 
  Country: None (occurrence: None)
  Receive Date: 20100601
  Receipt Date: 20100526
  Transmission Date: 20101027
  Serious: Yes (Disabling, Other)
  Sender: FDA-Public Use
  Company Number: GB-MERCK-1005GBR00095

PATIENT
  Age: 71 Year
  Sex: Male

DRUGS (7)
  1. ZETIA [Suspect]
     Indication: MYOCARDIAL ISCHAEMIA
     Route: 048
     Dates: start: 20091221
  2. ALBUTEROL [Concomitant]
     Indication: ASTHMA
     Route: 055
  3. ASPIRIN [Concomitant]
     Indication: CARDIOVASCULAR EVENT PROPHYLAXIS
     Route: 048
     Dates: start: 20080101
  4. OMEPRAZOLE [Concomitant]
     Indication: DYSPEPSIA
     Route: 048
  5. SALMETEROL [Concomitant]
     Indication: ASTHMA
     Route: 055
  6. GRAPEFRUIT [Suspect]
     Route: 065
  7. BECLOMETHASONE DIPROPIONATE [Concomitant]
     Indication: ASTHMA
     Route: 055
     Dates: start: 20100129

REACTIONS (2)
  - CHEST PAIN [None]
  - FOOD INTERACTION [None]
